FAERS Safety Report 6861869-4 (Version None)
Quarter: 2010Q3

REPORT INFORMATION
  Report Type: 
  Country: None (occurrence: None)
  Receive Date: 20100721
  Receipt Date: 20100712
  Transmission Date: 20110219
  Serious: No
  Sender: FDA-Public Use
  Company Number: 2009BI020242

PATIENT
  Sex: Female

DRUGS (1)
  1. TYSABRI [Suspect]
     Indication: MULTIPLE SCLEROSIS
     Route: 042
     Dates: start: 20081117

REACTIONS (8)
  - AMENORRHOEA [None]
  - APHASIA [None]
  - DEPRESSION [None]
  - FEELING COLD [None]
  - MOOD SWINGS [None]
  - NIGHT SWEATS [None]
  - POOR VENOUS ACCESS [None]
  - PREMATURE MENOPAUSE [None]
